FAERS Safety Report 7455562-7 (Version None)
Quarter: 2011Q2

REPORT INFORMATION
  Report Type: 
  Country: None (occurrence: None)
  Receive Date: 20110503
  Receipt Date: 20110114
  Transmission Date: 20111010
  Serious: Yes (Other)
  Sender: FDA-Public Use
  Company Number: US-ROCHE-756944

PATIENT
  Sex: Female
  Weight: 59 kg

DRUGS (4)
  1. ARIMIDEX [Concomitant]
  2. KLONOPIN [Suspect]
     Indication: SOMNOLENCE
     Dosage: 01 WAFER
     Route: 048
  3. GLUCOSAMINE [Concomitant]
  4. KLONOPIN [Suspect]
     Dosage: FORM: WAFER. FREQ: HS, AT BEDTIME
     Route: 048

REACTIONS (7)
  - BLOOD ALKALINE PHOSPHATASE INCREASED [None]
  - VISION BLURRED [None]
  - ALANINE AMINOTRANSFERASE INCREASED [None]
  - CONFUSIONAL STATE [None]
  - DRUG EFFECT DECREASED [None]
  - ASPARTATE AMINOTRANSFERASE INCREASED [None]
  - DRY EYE [None]
